FAERS Safety Report 7392188-8 (Version None)
Quarter: 2011Q2

REPORT INFORMATION
  Report Type: 
  Country: None (occurrence: None)
  Receive Date: 20110404
  Receipt Date: 20110328
  Transmission Date: 20111010
  Serious: Yes (Hospitalization)
  Sender: FDA-Public Use
  Company Number: B0708917A

PATIENT
  Sex: Male

DRUGS (4)
  1. AUGMENTIN [Suspect]
     Indication: INFLUENZA LIKE ILLNESS
     Dosage: 1000MG TWICE PER DAY
     Route: 048
     Dates: start: 20110118, end: 20110121
  2. SOLUPRED 20 [Concomitant]
     Route: 065
     Dates: start: 20110118
  3. NEO-CODION ADULT [Suspect]
     Indication: INFLUENZA LIKE ILLNESS
     Dosage: 4UNIT PER DAY
     Route: 048
     Dates: start: 20110118, end: 20110121
  4. DAFALGAN [Suspect]
     Indication: INFLUENZA LIKE ILLNESS
     Dosage: 4G PER DAY
     Route: 048
     Dates: start: 20110118, end: 20110121

REACTIONS (6)
  - PURPURA [None]
  - MOUTH HAEMORRHAGE [None]
  - EPISTAXIS [None]
  - THROMBOCYTOPENIA [None]
  - PRURITUS [None]
  - OROPHARYNGEAL BLISTERING [None]
